FAERS Safety Report 9129624 (Version 2)
Quarter: 2013Q2

REPORT INFORMATION
  Report Type: Spontaneous
  Country: MX (occurrence: MX)
  Receive Date: 20130228
  Receipt Date: 20130418
  Transmission Date: 20140414
  Serious: Yes (Death, Hospitalization)
  Sender: FDA-Public Use
  Company Number: MX-JNJFOC-20130211622

PATIENT
  Age: 85 Year
  Sex: Female
  Weight: 50 kg

DRUGS (3)
  1. XARELTO [Suspect]
     Indication: ATRIAL FIBRILLATION
     Route: 048
     Dates: start: 20120905, end: 20121223
  2. XARELTO [Suspect]
     Indication: CEREBROVASCULAR ACCIDENT PROPHYLAXIS
     Route: 048
     Dates: start: 20120905, end: 20121223
  3. AMIODARONE [Concomitant]
     Indication: ATRIAL FIBRILLATION
     Route: 065
     Dates: start: 201207

REACTIONS (7)
  - Cerebral thrombosis [Fatal]
  - Disorientation [Unknown]
  - Confusional state [Unknown]
  - Loss of consciousness [Unknown]
  - Eye movement disorder [Unknown]
  - VIIth nerve paralysis [Unknown]
  - Drug ineffective [Not Recovered/Not Resolved]
